FAERS Safety Report 10557010 (Version 1)
Quarter: 2014Q4

REPORT INFORMATION
  Report Type: Spontaneous
  Country: US (occurrence: US)
  Receive Date: 20141031
  Receipt Date: 20141031
  Transmission Date: 20150529
  Serious: Yes (Other)
  Sender: FDA-Public Use
  Company Number: US-SA-2014SA147775

PATIENT
  Age: 81 Year
  Sex: Female

DRUGS (14)
  1. METFORMIN HYDROCHLORIDE. [Suspect]
     Active Substance: METFORMIN HYDROCHLORIDE
     Indication: DIABETES MELLITUS
     Route: 048
     Dates: start: 2013
  2. RETINOL [Concomitant]
     Active Substance: RETINOL
  3. VITAMIN B NOS [Concomitant]
     Active Substance: VITAMIN B
  4. LISINOPRIL. [Suspect]
     Active Substance: LISINOPRIL
     Indication: HYPERTENSION
     Route: 048
     Dates: start: 2009
  5. HYDROCHLOROTHIAZIDE. [Suspect]
     Active Substance: HYDROCHLOROTHIAZIDE
     Indication: HYPERTENSION
     Route: 048
     Dates: start: 2009
  6. VYTORIN [Concomitant]
     Active Substance: EZETIMIBE\SIMVASTATIN
  7. CENTRUM SILVER [Concomitant]
     Active Substance: VITAMINS
  8. METFORMIN HYDROCHLORIDE. [Suspect]
     Active Substance: METFORMIN HYDROCHLORIDE
     Indication: DIABETES MELLITUS
     Route: 048
     Dates: start: 2012
  9. ALLEGRA [Suspect]
     Active Substance: FEXOFENADINE HYDROCHLORIDE
     Indication: SEASONAL ALLERGY
     Dosage: FREQUENCY: QD PRN
     Route: 048
     Dates: start: 2004
  10. MINERALS NOS [Concomitant]
     Active Substance: MINERALS
  11. VITAMINS NOS [Concomitant]
     Active Substance: VITAMINS
  12. ZINC [Concomitant]
     Active Substance: ZINC\ZINC CHLORIDE
  13. COQ10 [Suspect]
     Active Substance: UBIDECARENONE
     Route: 048
     Dates: start: 2010
  14. ACETYLSALICYLIC ACID [Concomitant]
     Active Substance: ASPIRIN
     Indication: CARDIOVASCULAR EVENT PROPHYLAXIS
     Route: 048
     Dates: start: 2010

REACTIONS (3)
  - Arthritis [Not Recovered/Not Resolved]
  - Diabetes mellitus [Unknown]
  - Pain in extremity [Not Recovered/Not Resolved]

NARRATIVE: CASE EVENT DATE: 20140911
